FAERS Safety Report 8545437-4 (Version None)
Quarter: 2012Q3

REPORT INFORMATION
  Report Type: 
  Country: None (occurrence: None)
  Receive Date: 20120727
  Receipt Date: 20111104
  Transmission Date: 20120928
  Serious: No
  Sender: FDA-Public Use
  Company Number: US-ASTRAZENECA-2011SE67011

PATIENT
  Age: 53 Year
  Sex: Male
  Weight: 103.4 kg

DRUGS (5)
  1. CRESTOR [Suspect]
     Route: 048
  2. XANAX [Concomitant]
  3. GEMFIBROZIL [Concomitant]
  4. SEROQUEL [Suspect]
     Indication: SLEEP DISORDER
     Route: 048
     Dates: start: 20030101
  5. ZOLOFT [Concomitant]
     Indication: DEPRESSION

REACTIONS (3)
  - DIABETES MELLITUS [None]
  - OFF LABEL USE [None]
  - LIPIDS INCREASED [None]
